FAERS Safety Report 5889654-0 (Version None)
Quarter: 2008Q3

REPORT INFORMATION
  Report Type: 
  Country: None (occurrence: None)
  Receive Date: 20080919
  Receipt Date: 20080912
  Transmission Date: 20090109
  Serious: Yes (Hospitalization, Other)
  Sender: FDA-Public Use
  Company Number: US-AVENTIS-200818763GDDC

PATIENT
  Age: 68 Year
  Sex: Male
  Weight: 68.04 kg

DRUGS (4)
  1. TAXOTERE [Suspect]
     Dosage: DOSE: 180 MG AS TOTAL DOSE ADMINISTERED THIS COURSE
     Route: 042
     Dates: start: 20071030, end: 20071212
  2. OXALIPLATIN [Suspect]
     Dosage: DOSE: 380 MG AS TOTAL DOSE ADMINISTERED THIS COURSE
     Route: 042
     Dates: start: 20071030, end: 20071212
  3. CAPECITABINE [Suspect]
     Dosage: DOSE: 77000 MG AS TOTAL DOSE ADMINISTERED THIS COURSE
     Route: 048
     Dates: start: 20071030, end: 20071211
  4. RADIATION THERAPY [Suspect]
     Dosage: DOSE: 1.8 GY/DAY MONDAY TO FRIDAY
     Dates: start: 20071030, end: 20071219

REACTIONS (1)
  - HIATUS HERNIA [None]
